FAERS Safety Report 5285324-0 (Version None)
Quarter: 2007Q1

REPORT INFORMATION
  Report Type: 
  Country: None (occurrence: None)
  Receive Date: 20070328
  Receipt Date: 20070315
  Transmission Date: 20070707
  Serious: Yes (Disabling)
  Sender: FDA-Public Use
  Company Number: 2007JP001017

PATIENT
  Sex: Male
  Weight: 50 kg

DRUGS (3)
  1. FUNGUARD(MICAFUNGIN) INJECTION [Suspect]
     Dosage: 100 MG, D, IV DRIP
     Route: 041
     Dates: start: 20070224
  2. TARGOCID [Suspect]
     Indication: NEUTROPHIL COUNT INCREASED
     Dosage: 400 MG, CONTINUOUS, IV DRIP
     Route: 041
     Dates: start: 20070223, end: 20070302
  3. FINIBAX(DORIPENEM HYDRATE) INJECTION [Suspect]
     Indication: NEUTROPHIL COUNT INCREASED
     Dosage: 0.25 MG, CONTINUOUS, IV DRIP
     Route: 041
     Dates: start: 20070223, end: 20070302

REACTIONS (1)
  - EOSINOPHIL COUNT INCREASED [None]
